FAERS Safety Report 9110455 (Version 3)
Quarter: 2013Q1

REPORT INFORMATION
  Report Type: Spontaneous
  Country: US (occurrence: US)
  Receive Date: 20130222
  Receipt Date: 20130308
  Transmission Date: 20140127
  Serious: Yes (Other)
  Sender: FDA-Public Use
  Company Number: US-RB-050417-13

PATIENT
  Age: 71 Year
  Sex: Female

DRUGS (6)
  1. MUCINEX FAST MAX ADULT COLD, FLU + SORE THROAT (ACETAMINOPHEN) [Suspect]
     Indication: PRODUCT USED FOR UNKNOWN INDICATION
     Dosage: PATIENT TOOK ANOTHER 20ML DOSE ON 07-FEB-2013 NIGHT.
     Route: 048
     Dates: start: 20130206
  2. MUCINEX FAST MAX ADULT COLD, FLU + SORE THROAT (DEXTROMETHORPHAN) [Suspect]
  3. MUCINEX FAST MAX ADULT COLD, FLU + SORE THROAT (GUAIFENESIN) [Suspect]
  4. MUCINEX FAST MAX ADULT COLD, FLU + SORE THROAT (PHENYLEPHRINE) [Suspect]
  5. SYNTHROID [Concomitant]
     Indication: DEPRESSION
  6. ZOLOFT [Concomitant]
     Indication: DEPRESSION

REACTIONS (12)
  - Constipation [Recovered/Resolved]
  - Hyperhidrosis [Recovered/Resolved]
  - Confusional state [Recovered/Resolved]
  - Abnormal dreams [Recovered/Resolved]
  - Abdominal pain upper [Recovered/Resolved]
  - Feeling abnormal [Recovered/Resolved]
  - Feeling abnormal [Recovered/Resolved]
  - Headache [Recovered/Resolved]
  - Somnolence [Recovered/Resolved]
  - Neck pain [Recovered/Resolved]
  - Headache [Recovered/Resolved]
  - Hypersomnia [Recovered/Resolved]
